FAERS Safety Report 8834158 (Version 2)
Quarter: 2012Q4

REPORT INFORMATION
  Report Type: 
  Country: US (occurrence: US)
  Receive Date: 20121010
  Receipt Date: 20121018
  Transmission Date: 20130627
  Serious: No
  Sender: FDA-Public Use
  Company Number: US-ASTRAZENECA-2012SE75026

PATIENT
  Age: 56 Year
  Sex: Female

DRUGS (8)
  1. SEROQUEL XR [Suspect]
     Route: 048
  2. SEROQUEL XR [Suspect]
     Dosage: GENERIC
     Route: 048
  3. ALREX [Concomitant]
  4. CLONAZEPAM [Concomitant]
  5. FLUOXETINE HCL [Concomitant]
  6. ALPRAZOLAM XR [Concomitant]
  7. DIAZEPAM [Concomitant]
  8. PROMETHEGAN [Concomitant]

REACTIONS (4)
  - Nervous system disorder [Unknown]
  - Mental impairment [Unknown]
  - Nausea [Unknown]
  - Headache [Unknown]
